FAERS Safety Report 5936244-7 (Version None)
Quarter: 2008Q4

REPORT INFORMATION
  Report Type: 
  Country: None (occurrence: None)
  Receive Date: 20081030
  Receipt Date: 20080425
  Transmission Date: 20090506
  Serious: No
  Sender: FDA-Public Use
  Company Number: A0723203A

PATIENT
  Age: 48 Year
  Sex: Female

DRUGS (11)
  1. SEREVENT [Suspect]
     Indication: ASTHMA
     Dosage: 1PUFF TWICE PER DAY
     Route: 055
     Dates: start: 20050101, end: 20080401
  2. ADVAIR DISKUS 100/50 [Suspect]
     Indication: ASTHMA
     Dosage: 1PUFF TWICE PER DAY
     Route: 055
     Dates: start: 20080401
  3. ALBUTEROL [Concomitant]
     Route: 055
  4. LISINOPRIL [Concomitant]
  5. METOPROLOL TARTRATE [Concomitant]
  6. PROMETHAZINE [Concomitant]
  7. CYCLOBENZAPRINE HCL [Concomitant]
  8. METHADONE HCL [Concomitant]
  9. MS CONTIN [Concomitant]
  10. VITAMIN B [Concomitant]
  11. ASCORBIC ACID [Concomitant]

REACTIONS (2)
  - SWOLLEN TONGUE [None]
  - TONGUE BLISTERING [None]
